FAERS Safety Report 9159735 (Version 1)
Quarter: 2013Q1

REPORT INFORMATION
  Report Type: Spontaneous
  Country: JP (occurrence: JP)
  Receive Date: 20130313
  Receipt Date: 20130313
  Transmission Date: 20140127
  Serious: Yes (Hospitalization)
  Sender: FDA-Public Use
  Company Number: JP-ELI_LILLY_AND_COMPANY-JP201303001590

PATIENT
  Sex: Female

DRUGS (2)
  1. EVISTA [Suspect]
     Route: 048
  2. BENET [Concomitant]

REACTIONS (1)
  - Fracture [Unknown]
